FAERS Safety Report 14647808 (Version 2)
Quarter: 2018Q3

REPORT INFORMATION
  Report Type: Spontaneous
  Country: AU (occurrence: AU)
  Receive Date: 20180316
  Receipt Date: 20180926
  Transmission Date: 20181010
  Serious: Yes (Death, Other)
  Sender: FDA-Public Use
  Company Number: AU-SUNOVION-2018DSP003081

PATIENT
  Age: 20 Year
  Sex: Female

DRUGS (4)
  1. LITHIUM CARBONATE. [Concomitant]
     Active Substance: LITHIUM CARBONATE
     Route: 065
  2. DULOXETINE. [Concomitant]
     Active Substance: DULOXETINE
     Route: 065
  3. LATUDA [Suspect]
     Active Substance: LURASIDONE HYDROCHLORIDE
     Indication: SCHIZOPHRENIA
     Route: 048
  4. CLOPINE [Concomitant]
     Active Substance: CLOZAPINE
     Dosage: 25 MG, UNK
     Route: 065
     Dates: start: 20130603, end: 20180214

REACTIONS (2)
  - Death [Fatal]
  - Intentional overdose [Unknown]
